FAERS Safety Report 5658847-X (Version None)
Quarter: 2008Q1

REPORT INFORMATION
  Report Type: 
  Country: None (occurrence: None)
  Receive Date: 20080310
  Receipt Date: 20070423
  Transmission Date: 20080703
  Serious: No
  Sender: FDA-Public Use
  Company Number: US-BAYER-200711243BCC

PATIENT
  Age: 77 Year
  Sex: Male
  Weight: 98 kg

DRUGS (4)
  1. ALEVE [Suspect]
     Indication: ARTHRITIS
     Route: 048
     Dates: start: 20070418
  2. VITAMIN D [Concomitant]
  3. ATENOLOL [Concomitant]
  4. MEMBER'S MARK ASPIRIN [Concomitant]
     Route: 048

REACTIONS (1)
  - JOINT SWELLING [None]
